FAERS Safety Report 8130986-3 (Version None)
Quarter: 2012Q1

REPORT INFORMATION
  Report Type: 
  Country: None (occurrence: None)
  Receive Date: 20120209
  Receipt Date: 20120209
  Transmission Date: 20120608
  Serious: No
  Sender: FDA-Public Use
  Company Number: None

PATIENT
  Sex: Male

DRUGS (1)
  1. ENBREL SURECLICK 60 MG AMGEN [Suspect]
     Indication: PSORIATIC ARTHROPATHY
     Dosage: 50MG QW SQ
     Route: 058
     Dates: start: 20110722, end: 20120120

REACTIONS (2)
  - LUNG NEOPLASM [None]
  - INFLUENZA [None]
